FAERS Safety Report 12848605 (Version 1)
Quarter: 2016Q4

REPORT INFORMATION
  Report Type: Spontaneous
  Country: US (occurrence: US)
  Receive Date: 20161014
  Receipt Date: 20161014
  Transmission Date: 20170207
  Serious: No
  Sender: FDA-Public Use
  Company Number: US-JNJFOC-20160824205

PATIENT
  Age: 8 Month
  Sex: Female

DRUGS (2)
  1. CHILDRENS TYLENOL [Suspect]
     Active Substance: ACETAMINOPHEN
     Indication: COUGH
     Route: 065
  2. CHILDRENS TYLENOL [Suspect]
     Active Substance: ACETAMINOPHEN
     Indication: MALAISE
     Route: 065

REACTIONS (3)
  - Drug administration error [Unknown]
  - Intentional product use issue [Unknown]
  - Intentional product misuse [Unknown]
